FAERS Safety Report 6695803-7 (Version None)
Quarter: 2010Q2

REPORT INFORMATION
  Report Type: 
  Country: None (occurrence: None)
  Receive Date: 20100423
  Receipt Date: 20100423
  Transmission Date: 20101027
  Serious: Yes (Hospitalization)
  Sender: FDA-Public Use
  Company Number: None

PATIENT
  Age: 20 Year
  Sex: Female
  Weight: 55 kg

DRUGS (4)
  1. CIPROFLOXACIN [Suspect]
     Indication: ANTI-INFECTIVE THERAPY
     Dosage: 500MG 12TH HOURLY PO
     Route: 048
  2. CIPROFLOXACIN [Suspect]
     Indication: FACE INJURY
     Dosage: 500MG 12TH HOURLY PO
     Route: 048
  3. CIPROFLOXACIN [Suspect]
     Indication: MOUTH INJURY
     Dosage: 500MG 12TH HOURLY PO
     Route: 048
  4. CEBRAN - CIPROFLOXACIN [Concomitant]

REACTIONS (4)
  - ERYTHEMA NODOSUM [None]
  - OEDEMA [None]
  - PAIN [None]
  - PYREXIA [None]
